FAERS Safety Report 18659295 (Version 1)
Quarter: 2020Q4

REPORT INFORMATION
  Report Type: Report from Study
  Country: GH (occurrence: GH)
  Receive Date: 20201224
  Receipt Date: 20201224
  Transmission Date: 20210114
  Serious: Yes (Other)
  Sender: FDA-Public Use
  Company Number: NVSC2020GH338505

PATIENT
  Sex: Female

DRUGS (1)
  1. UPERIO [Suspect]
     Active Substance: SACUBITRIL\VALSARTAN
     Indication: CARDIAC FAILURE
     Dosage: 100 MG, BID
     Route: 048

REACTIONS (2)
  - Breast tenderness [Unknown]
  - Breast pain [Recovering/Resolving]

NARRATIVE: CASE EVENT DATE: 20201213
